FAERS Safety Report 21017578 (Version 2)
Quarter: 2022Q3

REPORT INFORMATION
  Report Type: Other
  Country: US (occurrence: None)
  Receive Date: 20220628
  Receipt Date: 20220709
  Transmission Date: 20221027
  Serious: Yes (Death)
  Sender: FDA-Public Use
  Company Number: US-ROCHE-3126848

PATIENT
  Age: 77 Year
  Sex: Female

DRUGS (2)
  1. AVASTIN [Suspect]
     Active Substance: BEVACIZUMAB
     Indication: Colon cancer
     Dosage: INFUSE 400MG INTRAVENOUSLY EVERY 21 DAY(S)
     Route: 042
  2. AVASTIN [Suspect]
     Active Substance: BEVACIZUMAB
     Indication: Colorectal cancer metastatic

REACTIONS (1)
  - Death [Fatal]

NARRATIVE: CASE EVENT DATE: 20220426
